FAERS Safety Report 18978900 (Version 1)
Quarter: 2021Q1

REPORT INFORMATION
  Report Type: Other
  Country: US (occurrence: US)
  Receive Date: 20210308
  Receipt Date: 20210308
  Transmission Date: 20210420
  Serious: Yes (Other)
  Sender: FDA-Public Use
  Company Number: US-ROCHE-2784577

PATIENT
  Age: 78 Year
  Sex: Male

DRUGS (2)
  1. SORAFENIB [Suspect]
     Active Substance: SORAFENIB
     Indication: COLORECTAL CANCER METASTATIC
     Dosage: MAX VIA DOSE ESCALATION PER CYCLE. CYCLES WERE Q21D (TWICE PER 1 DAY) WITH TUMOR ASSESSMENTS Q9W (EV
     Route: 048
  2. CAPECITABINE. [Suspect]
     Active Substance: CAPECITABINE
     Indication: COLORECTAL CANCER METASTATIC
     Dosage: DAY 1 ? DAY 14 CYCLES WERE Q21D  (EVERY 21 DAY) WITH TUMOR ASSESSMENTS Q9W (EVERY 9 WEEKS).
     Route: 048

REACTIONS (1)
  - Delirium [Unknown]
